FAERS Safety Report 10278997 (Version 2)
Quarter: 2014Q3

REPORT INFORMATION
  Report Type: Spontaneous
  Country: JP (occurrence: JP)
  Receive Date: 20140706
  Receipt Date: 20140805
  Transmission Date: 20150326
  Serious: No
  Sender: FDA-Public Use
  Company Number: JP-ROCHE-1430056

PATIENT
  Age: 63 Year
  Sex: Female

DRUGS (12)
  1. PROGRAF [Concomitant]
     Active Substance: TACROLIMUS\TACROLIMUS ANHYDROUS
     Route: 048
     Dates: start: 20130422, end: 20140316
  2. LIPITOR [Concomitant]
     Active Substance: ATORVASTATIN CALCIUM
     Indication: HYPERLIPIDAEMIA
     Route: 048
     Dates: start: 20140120
  3. TRAVATAN Z [Concomitant]
     Active Substance: TRAVOPROST
     Indication: GLAUCOMA
     Dosage: PROPER QUANTITY
     Route: 047
     Dates: start: 2007
  4. PROGRAF [Concomitant]
     Active Substance: TACROLIMUS\TACROLIMUS ANHYDROUS
     Route: 048
     Dates: start: 20121213, end: 20130421
  5. TIMOPTOL [Concomitant]
     Active Substance: TIMOLOL
     Indication: GLAUCOMA
     Dosage: PROPER QUANTITY
     Route: 047
     Dates: start: 2007
  6. ACTEMRA [Suspect]
     Active Substance: TOCILIZUMAB
     Indication: RHEUMATOID ARTHRITIS
     Dosage: DOSAGE IS UNCERTAIN.
     Route: 041
     Dates: start: 20130902, end: 20140520
  7. ACTEMRA [Suspect]
     Active Substance: TOCILIZUMAB
     Indication: RHEUMATOID ARTHRITIS
  8. PROGRAF [Concomitant]
     Active Substance: TACROLIMUS\TACROLIMUS ANHYDROUS
     Route: 048
     Dates: start: 20140317
  9. THYRADIN-S [Concomitant]
     Active Substance: LEVOTHYROXINE
     Indication: AUTOIMMUNE THYROIDITIS
     Route: 048
     Dates: start: 1990
  10. ORENCIA [Concomitant]
     Active Substance: ABATACEPT
     Route: 065
     Dates: start: 20120306
  11. ERYTHROCIN [Suspect]
     Active Substance: ERYTHROMYCIN LACTOBIONATE
     Indication: ORGANISING PNEUMONIA
     Route: 048
     Dates: start: 20140218, end: 20140630
  12. PROGRAF [Concomitant]
     Active Substance: TACROLIMUS\TACROLIMUS ANHYDROUS
     Indication: RHEUMATOID ARTHRITIS
     Route: 048
     Dates: start: 20120104, end: 20121212

REACTIONS (1)
  - Eosinophil count increased [Not Recovered/Not Resolved]

NARRATIVE: CASE EVENT DATE: 20140630
